FAERS Safety Report 10593333 (Version 1)
Quarter: 2014Q4

REPORT INFORMATION
  Report Type: Spontaneous
  Country: US (occurrence: None)
  Receive Date: 20141118
  Receipt Date: 20141118
  Transmission Date: 20150529
  Serious: Yes (Disabling)
  Sender: FDA-Public Use
  Company Number: None

PATIENT
  Age: 62 Year
  Sex: Female
  Weight: 84.37 kg

DRUGS (16)
  1. STOOL SOFTNER [Concomitant]
  2. FLAX OIL [Concomitant]
  3. IBUPROFEN. [Concomitant]
     Active Substance: IBUPROFEN
  4. NAPROXEN. [Concomitant]
     Active Substance: NAPROXEN
  5. DOBUTAMINE [Suspect]
     Active Substance: DOBUTAMINE\DOBUTAMINE HYDROCHLORIDE
     Indication: CARDIAC STRESS TEST
     Route: 042
     Dates: start: 20140819, end: 20140819
  6. CLONIDINE. [Concomitant]
     Active Substance: CLONIDINE
  7. HUMALOG [Concomitant]
     Active Substance: INSULIN LISPRO
  8. ASPIRIN. [Concomitant]
     Active Substance: ASPIRIN
  9. LOSARTAN [Concomitant]
     Active Substance: LOSARTAN
  10. VALTREX [Concomitant]
     Active Substance: VALACYCLOVIR HYDROCHLORIDE
  11. CPAP [Concomitant]
     Active Substance: DEVICE
  12. VITAMIN D [Concomitant]
     Active Substance: CHOLECALCIFEROL
  13. BABY ASPIRIN [Concomitant]
     Active Substance: ASPIRIN
  14. RANITIDINE [Concomitant]
     Active Substance: RANITIDINE\RANITIDINE HYDROCHLORIDE
  15. LINZESS [Concomitant]
     Active Substance: LINACLOTIDE
  16. HUMILIN [Concomitant]

REACTIONS (5)
  - Palpitations [None]
  - Pain in extremity [None]
  - Angina pectoris [None]
  - Blood pressure inadequately controlled [None]
  - Dyspnoea [None]

NARRATIVE: CASE EVENT DATE: 20140819
